FAERS Safety Report 11078497 (Version 1)
Quarter: 2015Q2

REPORT INFORMATION
  Report Type: Spontaneous
  Country: FR (occurrence: FR)
  Receive Date: 20150430
  Receipt Date: 20150430
  Transmission Date: 20150821
  Serious: Yes (Death)
  Sender: FDA-Public Use
  Company Number: FR-SA-2015SA053839

PATIENT
  Age: 75 Year
  Sex: Female

DRUGS (9)
  1. PLAVIX [Suspect]
     Active Substance: CLOPIDOGREL BISULFATE
     Route: 048
     Dates: end: 20141207
  2. HYPERIUM [Concomitant]
     Active Substance: RILMENIDINE PHOSPHATE
  3. TEGRETOL [Concomitant]
     Active Substance: CARBAMAZEPINE
  4. FLUOXETINE HYDROCHLORIDE. [Suspect]
     Active Substance: FLUOXETINE HYDROCHLORIDE
     Route: 048
     Dates: end: 20141207
  5. SERESTA [Concomitant]
     Active Substance: OXAZEPAM
  6. ZOCOR [Concomitant]
     Active Substance: SIMVASTATIN
     Dosage: DIVISIBKE COATED TABLET
  7. SERESTA [Concomitant]
     Active Substance: OXAZEPAM
  8. COVERSYL [Concomitant]
     Active Substance: PERINDOPRIL
  9. AVONEX [Concomitant]
     Active Substance: INTERFERON BETA-1A

REACTIONS (2)
  - Subdural haematoma [Fatal]
  - Coma [Fatal]

NARRATIVE: CASE EVENT DATE: 20141207
